FAERS Safety Report 6039494-7 (Version None)
Quarter: 2009Q1

REPORT INFORMATION
  Report Type: 
  Country: None (occurrence: None)
  Receive Date: 20090114
  Receipt Date: 20090106
  Transmission Date: 20090719
  Serious: Yes (Other)
  Sender: FDA-Public Use
  Company Number: SPV1-2009-00019

PATIENT
  Age: 9 Year
  Sex: Male
  Weight: 25.9 kg

DRUGS (1)
  1. ELAPRASE [Suspect]
     Indication: MUCOPOLYSACCHARIDOSIS II
     Dosage: 12 MG, 1X/ WEEK, IV DRIP
     Route: 041
     Dates: start: 20061206

REACTIONS (3)
  - CONVULSION [None]
  - INFUSION RELATED REACTION [None]
  - SOMNOLENCE [None]
